FAERS Safety Report 5093864-2 (Version None)
Quarter: 2006Q3

REPORT INFORMATION
  Report Type: 
  Country: None (occurrence: None)
  Receive Date: 20060831
  Receipt Date: 20060823
  Transmission Date: 20061208
  Serious: Yes (Death, Life-Threatening, Hospitalization, Disabling)
  Sender: FDA-Public Use
  Company Number: JP-BRISTOL-MYERS SQUIBB COMPANY-13488747

PATIENT
  Age: 54 Year
  Sex: Male

DRUGS (6)
  1. TAXOL [Suspect]
     Indication: LUNG NEOPLASM MALIGNANT
     Route: 041
     Dates: start: 20030407, end: 20030407
  2. PARAPLATIN [Suspect]
     Indication: LUNG NEOPLASM MALIGNANT
     Route: 041
     Dates: start: 20030407, end: 20030407
  3. DECADRON [Concomitant]
     Route: 042
     Dates: start: 20030407, end: 20030407
  4. ZANTAC [Concomitant]
     Route: 042
     Dates: start: 20030407, end: 20030407
  5. ZOFRAN [Concomitant]
     Route: 042
     Dates: start: 20030407, end: 20030407
  6. RESTAMIN [Concomitant]
     Route: 048
     Dates: start: 20030407, end: 20030407

REACTIONS (2)
  - INTERSTITIAL LUNG DISEASE [None]
  - MALIGNANT NEOPLASM PROGRESSION [None]
